FAERS Safety Report 11305803 (Version 1)
Quarter: 2015Q3

REPORT INFORMATION
  Report Type: Spontaneous
  Country: US (occurrence: US)
  Receive Date: 20150723
  Receipt Date: 20150723
  Transmission Date: 20151125
  Serious: No
  Sender: FDA-Public Use
  Company Number: US-TEVA-580800USA

PATIENT
  Age: 72 Year
  Sex: Female
  Weight: 60.84 kg

DRUGS (1)
  1. QVAR [Suspect]
     Active Substance: BECLOMETHASONE DIPROPIONATE
     Indication: THROAT IRRITATION
     Dates: start: 20150716

REACTIONS (4)
  - Disturbance in attention [Recovered/Resolved]
  - Abulia [Recovered/Resolved]
  - Confusional state [Recovered/Resolved]
  - Intentional product use issue [Unknown]

NARRATIVE: CASE EVENT DATE: 20150716
